FAERS Safety Report 13498599 (Version 4)
Quarter: 2020Q3

REPORT INFORMATION
  Report Type: Spontaneous
  Country: US (occurrence: US)
  Receive Date: 20170501
  Receipt Date: 20200728
  Transmission Date: 20201102
  Serious: Yes (Other)
  Sender: FDA-Public Use
  Company Number: US-PFIZER INC-2017181833

PATIENT
  Age: 73 Year
  Sex: Female

DRUGS (3)
  1. LYRICA [Suspect]
     Active Substance: PREGABALIN
     Dosage: 50 MG, UNK
  2. LYRICA [Suspect]
     Active Substance: PREGABALIN
     Dosage: 150 MG, DAILY [LYRICA 50 MG/QUANTITY 90/ 30 DAY SUPPLY ]
  3. LYRICA [Suspect]
     Active Substance: PREGABALIN
     Dosage: 100 MG, DAILY [LYRICA 25 MG/QUANTITY 120/DAY SUPPLY 30]

REACTIONS (5)
  - Cataract [Unknown]
  - Pain [Unknown]
  - Glaucoma [Unknown]
  - Dry eye [Unknown]
  - Accident [Unknown]
